FAERS Safety Report 6187950-3 (Version None)
Quarter: 2009Q2

REPORT INFORMATION
  Report Type: 
  Country: None (occurrence: None)
  Receive Date: 20090511
  Receipt Date: 20090511
  Transmission Date: 20091009
  Serious: Yes (Hospitalization)
  Sender: FDA-Public Use
  Company Number: None

PATIENT
  Sex: Female
  Weight: 97.0698 kg

DRUGS (1)
  1. DAPTOMYCIN 500MG VIAL (CUBICIN) [Suspect]
     Indication: CELLULITIS STAPHYLOCOCCAL
     Dosage: 500 MG Q 24 HOURS IVPB
     Route: 042
     Dates: start: 20090324, end: 20090329

REACTIONS (2)
  - RENAL FAILURE ACUTE [None]
  - RHABDOMYOLYSIS [None]
